FAERS Safety Report 10142812 (Version 1)
Quarter: 2014Q2

REPORT INFORMATION
  Report Type: Spontaneous
  Country: CN (occurrence: CN)
  Receive Date: 20140430
  Receipt Date: 20140430
  Transmission Date: 20141212
  Serious: Yes (Hospitalization)
  Sender: FDA-Public Use
  Company Number: CN-ABBVIE-14P-035-1231673-00

PATIENT
  Age: 51 Year
  Sex: Male

DRUGS (4)
  1. LIPANTHYL [Suspect]
     Indication: BLOOD TRIGLYCERIDES INCREASED
     Dates: start: 20140227, end: 20140301
  2. LIPANTHYL [Suspect]
     Indication: ARRHYTHMIA
  3. ALL OTHER THERAPEUTIC PRODUCTS [Suspect]
     Indication: LIPIDS INCREASED
     Dates: start: 20140227
  4. ALL OTHER THERAPEUTIC PRODUCTS [Suspect]
     Indication: ARRHYTHMIA

REACTIONS (2)
  - Liver injury [Recovering/Resolving]
  - Rhabdomyolysis [Recovering/Resolving]
